FAERS Safety Report 4805463-5 (Version None)
Quarter: 2005Q4

REPORT INFORMATION
  Report Type: 
  Country: None (occurrence: None)
  Receive Date: 20051021
  Receipt Date: 20051010
  Transmission Date: 20060501
  Serious: Yes (Other)
  Sender: FDA-Public Use
  Company Number: US-ABBOTT-05P-163-0313309-00

PATIENT
  Sex: Female
  Weight: 71.278 kg

DRUGS (4)
  1. HUMIRA [Suspect]
     Indication: RHEUMATOID ARTHRITIS
     Route: 058
     Dates: start: 20050301
  2. RISEDRONATE SODIUM [Concomitant]
     Indication: OSTEOPOROSIS
     Route: 048
  3. TOPROL-XL [Concomitant]
     Indication: HYPERTENSION
     Route: 048
  4. SPIRONOLACTONE [Concomitant]
     Indication: DIURETIC THERAPY
     Route: 048

REACTIONS (2)
  - INJECTION SITE IRRITATION [None]
  - POLYMYOSITIS [None]
